FAERS Safety Report 7529180-6 (Version None)
Quarter: 2011Q2

REPORT INFORMATION
  Report Type: 
  Country: None (occurrence: None)
  Receive Date: 20110607
  Receipt Date: 20110530
  Transmission Date: 20111010
  Serious: Yes (Hospitalization)
  Sender: FDA-Public Use
  Company Number: ID-ROCHE-779723

PATIENT
  Age: 73 Year
  Sex: Male

DRUGS (2)
  1. PEGASYS [Suspect]
     Route: 058
     Dates: end: 20110503
  2. PEGASYS [Suspect]
     Indication: HEPATITIS C
     Route: 058
     Dates: start: 20100612

REACTIONS (4)
  - HYPOPHAGIA [None]
  - THROMBOCYTOPENIA [None]
  - NEUTROPENIA [None]
  - VOMITING [None]
